FAERS Safety Report 9079885 (Version 1)
Quarter: 2013Q1

REPORT INFORMATION
  Report Type: Report from Study
  Country: US (occurrence: US)
  Receive Date: 20130130
  Receipt Date: 20130130
  Transmission Date: 20140127
  Serious: No
  Sender: FDA-Public Use
  Company Number: US-ABBOTT-12P-163-0962827-00

PATIENT
  Age: 71 Year
  Sex: Female

DRUGS (1)
  1. HUMIRA 40 MG/0.8 ML PEN [Suspect]
     Indication: ANKYLOSING SPONDYLITIS
     Route: 058

REACTIONS (5)
  - Haematochezia [Unknown]
  - Colonoscopy abnormal [Unknown]
  - Gastritis erosive [Unknown]
  - Polypectomy [Unknown]
  - Injection site pain [Recovered/Resolved]
